FAERS Safety Report 15222139 (Version 6)
Quarter: 2023Q1

REPORT INFORMATION
  Report Type: Spontaneous
  Country: US (occurrence: US)
  Receive Date: 20180731
  Receipt Date: 20230329
  Transmission Date: 20230417
  Serious: Yes (Other)
  Sender: FDA-Public Use
  Company Number: US-PFIZER INC-2016425482

PATIENT
  Age: 12 Year
  Sex: Male
  Weight: 27 kg

DRUGS (14)
  1. BENEFIX [Suspect]
     Active Substance: COAGULATION FACTOR IX RECOMBINANT HUMAN\ISOPROPYL ALCOHOL
     Indication: Factor IX deficiency
     Dosage: 1200 IU, AS NEEDED (DAILY AS NEEDED FOR MINOR BLEEDS CAN ADJUST DOSE +/- 10%)
     Dates: start: 20160907
  2. BENEFIX [Suspect]
     Active Substance: COAGULATION FACTOR IX RECOMBINANT HUMAN\ISOPROPYL ALCOHOL
     Dosage: 2400 IU, AS NEEDED (DAILY AS NEEDED FOR MAJOR BLEEDS, CAN ADJUST DOSE +/- 10%)
     Dates: start: 20160907
  3. BENEFIX [Suspect]
     Active Substance: COAGULATION FACTOR IX RECOMBINANT HUMAN\ISOPROPYL ALCOHOL
     Dosage: 250 IU, SINGLE
     Route: 042
     Dates: start: 20160909, end: 20160909
  4. BENEFIX [Suspect]
     Active Substance: COAGULATION FACTOR IX RECOMBINANT HUMAN\ISOPROPYL ALCOHOL
     Dosage: 1200 IU, AS NEEDED (DAILY AS NEEDED FOR MINOR BLEEDS(+/- 10%))
     Dates: start: 20160909, end: 20160909
  5. BENEFIX [Suspect]
     Active Substance: COAGULATION FACTOR IX RECOMBINANT HUMAN\ISOPROPYL ALCOHOL
     Dosage: 2400 IU, AS NEEDED (DAILY AS NEEDED FOR MAJOR BLEEDS (+/- 10%))
     Dates: start: 20160909, end: 20160909
  6. BENEFIX [Suspect]
     Active Substance: COAGULATION FACTOR IX RECOMBINANT HUMAN\ISOPROPYL ALCOHOL
     Dosage: 1250 IU, AS NEEDED (FOR MINOR BLEEDS)
     Route: 042
     Dates: start: 20160914, end: 20160914
  7. BENEFIX [Suspect]
     Active Substance: COAGULATION FACTOR IX RECOMBINANT HUMAN\ISOPROPYL ALCOHOL
     Dosage: 2500 IU, AS NEEDED (FOR MAJOR BLEEDS)
     Route: 042
     Dates: start: 20160914, end: 20160914
  8. BENEFIX [Suspect]
     Active Substance: COAGULATION FACTOR IX RECOMBINANT HUMAN\ISOPROPYL ALCOHOL
     Dosage: 1200 IU, AS NEEDED (DAILY AS NEEDED FOR MINOR BLEEDS, CAN ADJUST DOSE +/- 10%)
     Dates: start: 20161128
  9. BENEFIX [Suspect]
     Active Substance: COAGULATION FACTOR IX RECOMBINANT HUMAN\ISOPROPYL ALCOHOL
     Dosage: 2400 IU, AS NEEDED (DAILY AS NEEDED FOR MAJOR BLEEDS, CAN ADJUST DOSE +/- 10%)
     Dates: start: 20161128
  10. BENEFIX [Suspect]
     Active Substance: COAGULATION FACTOR IX RECOMBINANT HUMAN\ISOPROPYL ALCOHOL
     Dosage: 1200 IU, AS NEEDED (DAILY AS NEEDED FOR MINOR BLEEDS, CAN ADJUST DOSE +/- 10%)
     Dates: start: 20171004
  11. BENEFIX [Suspect]
     Active Substance: COAGULATION FACTOR IX RECOMBINANT HUMAN\ISOPROPYL ALCOHOL
     Dosage: 2400 IU, AS NEEDED (AS NEEDED FOR MAJOR BLEEDS, CAN ADJUST DOSE +/- 10%)
     Dates: start: 20171004
  12. BENEFIX [Suspect]
     Active Substance: COAGULATION FACTOR IX RECOMBINANT HUMAN\ISOPROPYL ALCOHOL
     Dosage: 2300 IU, DAILY FOR MINOR BLEEDS
     Route: 042
     Dates: start: 20230320
  13. BENEFIX [Suspect]
     Active Substance: COAGULATION FACTOR IX RECOMBINANT HUMAN\ISOPROPYL ALCOHOL
     Dosage: 4600 IU, DAILY AS NEEDED FOR MAJOR BLEEDS
     Route: 042
     Dates: start: 20230320
  14. BENEFIX [Suspect]
     Active Substance: COAGULATION FACTOR IX RECOMBINANT HUMAN\ISOPROPYL ALCOHOL
     Dosage: 4600 IU, DAILY FOR MAJOR BLEEDS
     Route: 042
     Dates: start: 20230320

REACTIONS (3)
  - Haemorrhage [Unknown]
  - Skin laceration [Unknown]
  - Tooth extraction [Unknown]
